FAERS Safety Report 4967102-2 (Version None)
Quarter: 2006Q2

REPORT INFORMATION
  Report Type: 
  Country: None (occurrence: None)
  Receive Date: 20060403
  Receipt Date: 20060328
  Transmission Date: 20061013
  Serious: No
  Sender: FDA-Public Use
  Company Number: J081-002-002195

PATIENT
  Age: 73 Year
  Sex: Female
  Weight: 42 kg

DRUGS (7)
  1. ARICEPT [Suspect]
     Indication: DEMENTIA
     Dosage: SEE IMAGE
     Route: 048
     Dates: start: 20060105, end: 20060113
  2. ARICEPT [Suspect]
     Indication: DEMENTIA
     Dosage: SEE IMAGE
     Route: 048
     Dates: start: 20060324, end: 20060328
  3. RISPERIDONE [Suspect]
     Indication: DELUSION
     Dosage: 6 ML, 1 IN 1 D, ORAL
     Route: 048
     Dates: start: 20051120, end: 20060328
  4. SYMMETREL [Concomitant]
  5. AMOBAN (ZOPICLONE) [Concomitant]
  6. METLIGINE (MIDODRINE HYDROCHLORIDE) [Concomitant]
  7. ZYPREXA [Concomitant]

REACTIONS (9)
  - BLOOD PRESSURE DECREASED [None]
  - COGNITIVE DISORDER [None]
  - DISORIENTATION [None]
  - DRUG INTERACTION [None]
  - DRUG INTERACTION POTENTIATION [None]
  - HYPERTENSION [None]
  - MEMORY IMPAIRMENT [None]
  - PARKINSON'S DISEASE [None]
  - TACHYCARDIA [None]
